FAERS Safety Report 7673841-5 (Version None)
Quarter: 2011Q3

REPORT INFORMATION
  Report Type: 
  Country: None (occurrence: None)
  Receive Date: 20110808
  Receipt Date: 20110725
  Transmission Date: 20111222
  Serious: Yes (Other)
  Sender: FDA-Public Use
  Company Number: AUR-APL-2011-04456

PATIENT
  Age: 17 Year
  Sex: Male

DRUGS (3)
  1. SERTRALINE HYDROCHLORIDE [Concomitant]
  2. CITALOPRAM HYDROBROMIDE [Suspect]
     Indication: PRODUCT USED FOR UNKNOWN INDICATION
     Dosage: 10 MG (10 MG, EVERY MORNING)
  3. METHYLPHENIDATE HCL [Concomitant]

REACTIONS (4)
  - PAIN IN JAW [None]
  - SWOLLEN TONGUE [None]
  - FOOD ALLERGY [None]
  - DYSTONIA [None]
